FAERS Safety Report 18364750 (Version 1)
Quarter: 2020Q4

REPORT INFORMATION
  Report Type: Report from Study
  Country: US (occurrence: US)
  Receive Date: 20201009
  Receipt Date: 20201009
  Transmission Date: 20210114
  Serious: Yes (Death, Other)
  Sender: FDA-Public Use
  Company Number: US-ASTRAZENECA-2020SF29658

PATIENT
  Age: 23934 Day
  Sex: Female
  Weight: 68 kg

DRUGS (2)
  1. TAGRISSO [Suspect]
     Active Substance: OSIMERTINIB
     Indication: ADRENAL GLAND CANCER
     Route: 048
     Dates: start: 2018, end: 202007
  2. TAGRISSO [Suspect]
     Active Substance: OSIMERTINIB
     Indication: LUNG NEOPLASM MALIGNANT
     Route: 048
     Dates: start: 2018, end: 202007

REACTIONS (4)
  - Death [Fatal]
  - Metastases to spine [Unknown]
  - Malignant neoplasm progression [Unknown]
  - Diplopia [Unknown]

NARRATIVE: CASE EVENT DATE: 20200901
